FAERS Safety Report 4954587-0 (Version None)
Quarter: 2006Q1

REPORT INFORMATION
  Report Type: 
  Country: None (occurrence: None)
  Receive Date: 20060322
  Receipt Date: 20060306
  Transmission Date: 20060701
  Serious: Yes (Hospitalization)
  Sender: FDA-Public Use
  Company Number: 28823

PATIENT
  Age: 70 Year
  Sex: Male

DRUGS (1)
  1. FLECAINIDE ACETATE [Suspect]
     Indication: VENTRICULAR TACHYCARDIA
     Dosage: 200 MG (100 MG, 2 IN 1 DAY(S)) ORAL
     Route: 048
     Dates: start: 20060103, end: 20060210

REACTIONS (1)
  - POLYNEUROPATHY [None]
